FAERS Safety Report 8423754 (Version 2)
Quarter: 2013Q2

REPORT INFORMATION
  Report Type: Spontaneous
  Country: CA (occurrence: CA)
  Receive Date: 20120224
  Receipt Date: 20130603
  Transmission Date: 20140414
  Serious: Yes (Other)
  Sender: FDA-Public Use
  Company Number: CA-JNJFOC-20120208034

PATIENT
  Age: 47 Year
  Sex: Male
  Weight: 58.5 kg

DRUGS (4)
  1. REMICADE [Suspect]
     Indication: CROHN^S DISEASE
     Dosage: PATIENT^S 11TH INFUSION
     Route: 042
     Dates: start: 20120214
  2. REMICADE [Suspect]
     Indication: CROHN^S DISEASE
     Route: 042
     Dates: start: 201009
  3. TYLENOL [Concomitant]
     Dosage: AS REQUIRED (PRN)
     Route: 065
  4. SOLUCORTEF [Concomitant]
     Indication: PREMEDICATION
     Route: 042

REACTIONS (3)
  - Fistula [Not Recovered/Not Resolved]
  - Infusion related reaction [Recovered/Resolved]
  - Pruritus [Recovered/Resolved]
